FAERS Safety Report 21060330 (Version 3)
Quarter: 2022Q3

REPORT INFORMATION
  Report Type: Spontaneous
  Country: US (occurrence: US)
  Receive Date: 20220708
  Receipt Date: 20220721
  Transmission Date: 20221027
  Serious: Yes (Hospitalization)
  Sender: FDA-Public Use
  Company Number: US-SA-SAC20220705000818

PATIENT
  Age: 40 Year
  Sex: Male

DRUGS (2)
  1. FABRAZYME [Suspect]
     Active Substance: AGALSIDASE BETA
     Indication: Fabry^s disease
     Dosage: DOSE OR AMOUNT: 70 MG FREQUENCY: EVERY 2 WEEKS SINCE: SEP-2019
     Route: 042
     Dates: start: 20150320
  2. FABRAZYME [Suspect]
     Active Substance: AGALSIDASE BETA
     Indication: Fabry^s disease
     Dosage: DOSE OR AMOUNT: 5 MG FREQUENCY: EVERY 2 WEEKS
     Route: 042
     Dates: start: 20150320

REACTIONS (2)
  - Cystitis [Unknown]
  - Illness [Unknown]

NARRATIVE: CASE EVENT DATE: 20220101
